FAERS Safety Report 9853207 (Version 1)
Quarter: 2014Q1

REPORT INFORMATION
  Report Type: Spontaneous
  Country: CA (occurrence: CA)
  Receive Date: 20140129
  Receipt Date: 20140129
  Transmission Date: 20141002
  Serious: Yes (Other)
  Sender: FDA-Public Use
  Company Number: ALCN2014CA000721

PATIENT
  Sex: 0

DRUGS (1)
  1. ISOPTO CARPINE [Suspect]
     Dosage: 1 DF, UNK
     Route: 047

REACTIONS (4)
  - Presyncope [Unknown]
  - Headache [Unknown]
  - Nausea [Unknown]
  - Vomiting [Unknown]
